FAERS Safety Report 11309531 (Version 1)
Quarter: 2015Q3

REPORT INFORMATION
  Report Type: Spontaneous
  Country: TW (occurrence: TW)
  Receive Date: 20150724
  Receipt Date: 20150724
  Transmission Date: 20151125
  Serious: Yes (Other)
  Sender: FDA-Public Use
  Company Number: TW-BAYER-2015-381537

PATIENT
  Sex: Female

DRUGS (1)
  1. MIRENA [Suspect]
     Active Substance: LEVONORGESTREL
     Indication: MENORRHAGIA
     Dosage: 20 MCG/24HR, CONT
     Route: 015
     Dates: start: 201504

REACTIONS (5)
  - Uterine infection [None]
  - Abdominal pain [None]
  - Off label use of device [None]
  - Menorrhagia [None]
  - Device expulsion [None]

NARRATIVE: CASE EVENT DATE: 2015
